FAERS Safety Report 7417527-0 (Version None)
Quarter: 2011Q2

REPORT INFORMATION
  Report Type: 
  Country: None (occurrence: None)
  Receive Date: 20110412
  Receipt Date: 20110412
  Transmission Date: 20111010
  Serious: Yes (Hospitalization)
  Sender: FDA-Public Use
  Company Number: None

PATIENT
  Sex: Female
  Weight: 113.9 kg

DRUGS (2)
  1. CARBOPLATIN [Suspect]
     Dosage: 300 MG
     Dates: end: 20110316
  2. PACLITAXEL [Suspect]
     Dosage: 88 MG
     Dates: end: 20110316

REACTIONS (7)
  - CHILLS [None]
  - CULTURE URINE POSITIVE [None]
  - ESCHERICHIA TEST POSITIVE [None]
  - URINARY TRACT INFECTION [None]
  - ENTEROCOCCAL INFECTION [None]
  - PSEUDOMONAS INFECTION [None]
  - PYREXIA [None]
